FAERS Safety Report 8243695-7 (Version None)
Quarter: 2012Q1

REPORT INFORMATION
  Report Type: 
  Country: None (occurrence: None)
  Receive Date: 20120329
  Receipt Date: 20110211
  Transmission Date: 20120608
  Serious: No
  Sender: FDA-Public Use
  Company Number: US-MYLANLABS-2010S1020855

PATIENT
  Age: 61 Year
  Sex: Female

DRUGS (8)
  1. EMSAM [Suspect]
     Dosage: CHANGED Q24HRS
     Route: 062
     Dates: start: 20100417
  2. VITAMIN [Concomitant]
  3. VITAMIN D [Concomitant]
     Dates: start: 20110101
  4. MEDROL [Concomitant]
     Dates: start: 20100717
  5. LIOTHYRONINE SODIUM [Concomitant]
  6. EMSAM [Suspect]
     Indication: DEPRESSION
     Dosage: CHANGED DAILY
     Route: 062
     Dates: start: 20100401, end: 20100417
  7. RESTORIL [Concomitant]
     Dates: start: 20080628
  8. CLARITIN /00917501/ [Concomitant]
     Dates: start: 20100714

REACTIONS (4)
  - APPLICATION SITE PRURITUS [None]
  - APPLICATION SITE ERYTHEMA [None]
  - APPLICATION SITE INFLAMMATION [None]
  - APPLICATION SITE EXFOLIATION [None]
